FAERS Safety Report 9318478 (Version 1)
Quarter: 2013Q2

REPORT INFORMATION
  Report Type: Spontaneous
  Country: US (occurrence: US)
  Receive Date: 20130530
  Receipt Date: 20130530
  Transmission Date: 20140414
  Serious: No
  Sender: FDA-Public Use
  Company Number: US-NOVEN-12US005771

PATIENT
  Age: 6 Year
  Sex: Male

DRUGS (1)
  1. DAYTRANA [Suspect]
     Indication: PRODUCT USED FOR UNKNOWN INDICATION
     Dosage: 1/2 10MG PATCH
     Route: 062
     Dates: start: 20121203, end: 20121203

REACTIONS (4)
  - Headache [Not Recovered/Not Resolved]
  - Drug prescribing error [Not Recovered/Not Resolved]
  - Incorrect drug administration duration [Recovered/Resolved]
  - Wrong technique in drug usage process [Not Recovered/Not Resolved]
